FAERS Safety Report 8286600-X (Version None)
Quarter: 2012Q1

REPORT INFORMATION
  Report Type: 
  Country: None (occurrence: None)
  Receive Date: 20120323
  Receipt Date: 20120309
  Transmission Date: 20120608
  Serious: Yes (Death, Hospitalization)
  Sender: FDA-Public Use
  Company Number: 2012PROUSA00969

PATIENT
  Age: 72 Year
  Sex: Male
  Weight: 68.9 kg

DRUGS (6)
  1. DEXAMETHASONE [Concomitant]
  2. BENICAR HCT [Concomitant]
  3. MORPHINE [Concomitant]
  4. PROVENGE [Suspect]
     Indication: PROSTATE CANCER METASTATIC
     Dosage: 250 ML, SINGLE, INTRAVENOUS
     Route: 042
     Dates: start: 20111219, end: 20111219
  5. DENOSUMAB [Concomitant]
  6. PERCOCET [Concomitant]

REACTIONS (5)
  - POST PROCEDURAL COMPLICATION [None]
  - SEPSIS [None]
  - NEOPLASM PROGRESSION [None]
  - INTESTINAL OBSTRUCTION [None]
  - PROSTATE CANCER METASTATIC [None]
